FAERS Safety Report 10248329 (Version 1)
Quarter: 2014Q2

REPORT INFORMATION
  Report Type: Spontaneous
  Country: FR (occurrence: FR)
  Receive Date: 20140620
  Receipt Date: 20140620
  Transmission Date: 20141212
  Serious: Yes (Life-Threatening)
  Sender: FDA-Public Use
  Company Number: FR-009507513-1406FRA004974

PATIENT
  Age: 44 Year
  Sex: Female

DRUGS (1)
  1. ORGARAN [Suspect]
     Dosage: UNK
     Dates: start: 20140411, end: 20140510

REACTIONS (1)
  - Peritoneal haemorrhage [Not Recovered/Not Resolved]
